FAERS Safety Report 4751254-3 (Version None)
Quarter: 2005Q3

REPORT INFORMATION
  Report Type: 
  Country: None (occurrence: None)
  Receive Date: 20050822
  Receipt Date: 20050811
  Transmission Date: 20060218
  Serious: No
  Sender: FDA-Public Use
  Company Number: 05H-078-0302020-00

PATIENT
  Age: 26 Year
  Sex: Male

DRUGS (4)
  1. HALOTHANE [Suspect]
     Indication: ANAESTHESIA
     Dosage: 0.5 - 3% , INHALATION    1% , INHALATION
     Route: 055
  2. 30% OXYGEN (OXYGEN) [Concomitant]
  3. 70% NITROUS OXIDE (NITROUS OXIDE) [Concomitant]
  4. MIDAZOLAM HCL [Concomitant]

REACTIONS (3)
  - ALCOHOL WITHDRAWAL SYNDROME [None]
  - DISORIENTATION [None]
  - GRAND MAL CONVULSION [None]
